FAERS Safety Report 8830583 (Version 1)
Quarter: 2012Q4

REPORT INFORMATION
  Report Type: Spontaneous
  Country: US (occurrence: None)
  Receive Date: 20121005
  Receipt Date: 20121005
  Transmission Date: 20130627
  Serious: Yes (Hospitalization)
  Sender: FDA-Public Use
  Company Number: AE-SPE-2012-014

PATIENT
  Age: 75 Year
  Sex: Female

DRUGS (3)
  1. MEIACT MS [Suspect]
     Route: 048
  2. CEFCAPENE PIVOXIL HYDROCHLORIDE HYDRATE [Concomitant]
  3. GARENOXACIN MESILATE HYDRATE [Concomitant]

REACTIONS (12)
  - Decreased appetite [None]
  - Abnormal behaviour [None]
  - Coma [None]
  - Blood pressure systolic increased [None]
  - Hepatomegaly [None]
  - Hepatic steatosis [None]
  - Carnitine deficiency [None]
  - Blood glucose decreased [None]
  - Self-medication [None]
  - Body temperature decreased [None]
  - Blood creatine phosphokinase increased [None]
  - Prothrombin time prolonged [None]
